APPROVED DRUG PRODUCT: AMITRIPTYLINE HYDROCHLORIDE
Active Ingredient: AMITRIPTYLINE HYDROCHLORIDE
Strength: 75MG
Dosage Form/Route: TABLET;ORAL
Application: A210086 | Product #004 | TE Code: AB
Applicant: ZYDUS PHARMACEUTICALS USA INC
Approved: Oct 6, 2017 | RLD: No | RS: No | Type: RX